FAERS Safety Report 9775646 (Version 3)
Quarter: 2014Q1

REPORT INFORMATION
  Report Type: Spontaneous
  Country: GB (occurrence: GB)
  Receive Date: 20131220
  Receipt Date: 20140117
  Transmission Date: 20141002
  Serious: Yes (Congenital Anomaly)
  Sender: FDA-Public Use
  Company Number: GB-009507513-1312GBR009736

PATIENT
  Age: 1 Hour
  Sex: Male
  Weight: 4.1 kg

DRUGS (4)
  1. ISENTRESS [Suspect]
     Indication: HIV INFECTION
     Dosage: 400 MG, BID
     Route: 064
  2. PREZISTA [Suspect]
     Indication: HIV INFECTION
     Dosage: 800 MG, QD
     Route: 064
  3. SELZENTRY [Suspect]
     Indication: HIV INFECTION
     Dosage: 150 MG, BID
     Route: 064
  4. NORVIR [Suspect]
     Indication: HIV INFECTION
     Dosage: 100 MG, QD
     Route: 064

REACTIONS (4)
  - Bladder disorder [Unknown]
  - Congenital cystic kidney disease [Unknown]
  - Vesicoureteric reflux [Unknown]
  - Foetal exposure during pregnancy [Unknown]
